FAERS Safety Report 22359173 (Version 1)
Quarter: 2023Q2

REPORT INFORMATION
  Report Type: Spontaneous
  Country: CL (occurrence: CL)
  Receive Date: 20230524
  Receipt Date: 20230524
  Transmission Date: 20230721
  Serious: Yes (Hospitalization)
  Sender: FDA-Public Use
  Company Number: CL-STRIDES ARCOLAB LIMITED-2023SP007592

PATIENT
  Age: 23 Year
  Sex: Female

DRUGS (7)
  1. CINACALCET [Suspect]
     Active Substance: CINACALCET
     Indication: Hyperparathyroidism secondary
     Dosage: 60 MILLIGRAM; PER DAY; RECENTLY STARTED
     Route: 048
  2. SEVELAMER CARBONATE [Suspect]
     Active Substance: SEVELAMER CARBONATE
     Indication: Hyperparathyroidism secondary
     Dosage: UNK
     Route: 065
  3. SEVELAMER CARBONATE [Suspect]
     Active Substance: SEVELAMER CARBONATE
     Dosage: 7200 MILLIGRAM; PER DAY; STARTED LAST YEAR
     Route: 048
  4. CALCITRIOL [Suspect]
     Active Substance: CALCITRIOL
     Indication: Hyperparathyroidism secondary
     Dosage: UNK; AT DIFFERENT DOSES
     Route: 048
  5. CALCITRIOL [Suspect]
     Active Substance: CALCITRIOL
     Dosage: UNK
     Route: 065
  6. ERYTHROPOIETIN [Concomitant]
     Active Substance: ERYTHROPOIETIN
     Indication: Symptomatic treatment
     Dosage: 8000 INTERNATIONAL UNIT; PER WEEK
     Route: 065
  7. ERYTHROPOIETIN [Concomitant]
     Active Substance: ERYTHROPOIETIN
     Indication: Congenital vesicoureteric reflux

REACTIONS (2)
  - Hyperphosphataemia [Unknown]
  - Drug ineffective [Unknown]
